FAERS Safety Report 10198011 (Version 1)
Quarter: 2014Q2

REPORT INFORMATION
  Report Type: Spontaneous
  Country: US (occurrence: None)
  Receive Date: 20140523
  Receipt Date: 20140523
  Transmission Date: 20141212
  Serious: Yes (Other)
  Sender: FDA-Public Use
  Company Number: None

PATIENT
  Age: 86 Year
  Sex: Female
  Weight: 60.78 kg

DRUGS (12)
  1. PROLIA [Suspect]
     Indication: BONE DISORDER
     Dosage: 1SHOT IN ARM?2 TIMES A YEAR
     Dates: start: 201401
  2. ZAROXOLYN [Concomitant]
  3. LASIX [Concomitant]
  4. SYNTHROID [Concomitant]
  5. CARDIZEM CD [Concomitant]
  6. PREVACID [Concomitant]
  7. POTASSIUM CHLORIDE [Concomitant]
  8. FENAFIBRATE [Concomitant]
  9. IBUPROFEN [Concomitant]
  10. B-12 [Concomitant]
  11. VIT D [Concomitant]
  12. GLUCOSAMFINE CHONDRONTIN [Concomitant]

REACTIONS (7)
  - Pain in extremity [None]
  - Middle insomnia [None]
  - Arthralgia [None]
  - Pain in extremity [None]
  - Gait disturbance [None]
  - Peripheral swelling [None]
  - Peripheral swelling [None]
